FAERS Safety Report 11522112 (Version 2)
Quarter: 2015Q3

REPORT INFORMATION
  Report Type: Spontaneous
  Country: US (occurrence: US)
  Receive Date: 20150903
  Receipt Date: 20150903
  Transmission Date: 20151125
  Serious: No
  Sender: FDA-Public Use
  Company Number: US-ELI_LILLY_AND_COMPANY-US201002003642

PATIENT
  Age: 81 Year
  Sex: Female

DRUGS (5)
  1. LANTUS [Concomitant]
     Active Substance: INSULIN GLARGINE
  2. ANTIHYPERTENSIVES [Concomitant]
     Active Substance: UNSPECIFIED INGREDIENT
  3. HUMALOG [Suspect]
     Active Substance: INSULIN LISPRO
     Indication: DIABETES MELLITUS
     Dosage: 3 U, OTHER
     Dates: start: 2008
  4. HUMALOG [Suspect]
     Active Substance: INSULIN LISPRO
     Dosage: 5 U, OTHER
  5. HUMALOG [Suspect]
     Active Substance: INSULIN LISPRO
     Dosage: 10 U, OTHER

REACTIONS (16)
  - Paraesthesia [Not Recovered/Not Resolved]
  - Dizziness [Not Recovered/Not Resolved]
  - Paraesthesia [Unknown]
  - Blood glucose increased [Not Recovered/Not Resolved]
  - Tremor [Not Recovered/Not Resolved]
  - Hyperhidrosis [Unknown]
  - Visual impairment [Not Recovered/Not Resolved]
  - Cataract [Recovered/Resolved]
  - Skin turgor decreased [Recovered/Resolved]
  - Blood glucose decreased [Not Recovered/Not Resolved]
  - Mental impairment [Unknown]
  - Blood glucose decreased [Not Recovered/Not Resolved]
  - Photopsia [Recovered/Resolved]
  - Pallor [Unknown]
  - Post polio syndrome [Not Recovered/Not Resolved]
  - Paraesthesia [Not Recovered/Not Resolved]

NARRATIVE: CASE EVENT DATE: 200907
